FAERS Safety Report 12889343 (Version 1)
Quarter: 2016Q4

REPORT INFORMATION
  Report Type: Not Available
  Country: None (occurrence: US)
  Receive Date: 20161027
  Receipt Date: 20161027
  Transmission Date: 20170207
  Serious: No
  Sender: FDA-Public Use
  Company Number: US-AKORN-41863

PATIENT
  Age: 23 Year
  Sex: Male

DRUGS (1)
  1. PROPARACAINE HYDROCHLORIDE OPHTHALMIC SOLUTION USP, 0.5% [Suspect]
     Active Substance: PROPARACAINE HYDROCHLORIDE

REACTIONS (3)
  - Loss of consciousness [Recovered/Resolved]
  - Heart rate decreased [Recovered/Resolved]
  - Presyncope [Recovered/Resolved]
